FAERS Safety Report 8425585-X (Version None)
Quarter: 2012Q2

REPORT INFORMATION
  Report Type: 
  Country: None (occurrence: None)
  Receive Date: 20120531
  Receipt Date: 20120522
  Transmission Date: 20120825
  Serious: Yes (Hospitalization, Other)
  Sender: FDA-Public Use
  Company Number: 2012SP027928

PATIENT
  Age: 13 Year
  Sex: Male
  Weight: 48 kg

DRUGS (7)
  1. TEMOZOLOMIDE [Suspect]
     Indication: MALIGNANT GLIOMA
     Dosage: 110 MG 240 MG 300 MG
     Dates: start: 20120124, end: 20120127
  2. TEMOZOLOMIDE [Suspect]
     Indication: MALIGNANT GLIOMA
     Dosage: 110 MG 240 MG 300 MG
     Dates: start: 20111114, end: 20111227
  3. TEMOZOLOMIDE [Suspect]
     Indication: MALIGNANT GLIOMA
     Dosage: 110 MG 240 MG 300 MG
     Dates: start: 20120320, end: 20120324
  4. TEMOZOLOMIDE [Suspect]
     Indication: MALIGNANT GLIOMA
     Dosage: 110 MG 240 MG 300 MG
     Dates: start: 20120123, end: 20120123
  5. TEMOZOLOMIDE [Suspect]
     Indication: MALIGNANT GLIOMA
     Dosage: 110 MG 240 MG 300 MG
     Dates: start: 20120221, end: 20120225
  6. BEVACIZUMAB (BEVACIZUMAB) [Suspect]
     Indication: MALIGNANT GLIOMA
     Dosage: 10 MG/KG;QOW;IV 5 MG/KG;ONCE;IV
     Route: 042
     Dates: start: 20120410, end: 20120410
  7. BEVACIZUMAB (BEVACIZUMAB) [Suspect]
     Indication: MALIGNANT GLIOMA
     Dosage: 10 MG/KG;QOW;IV 5 MG/KG;ONCE;IV
     Route: 042
     Dates: start: 20111114, end: 20120320

REACTIONS (4)
  - GENERAL PHYSICAL HEALTH DETERIORATION [None]
  - CATHETER SITE RELATED REACTION [None]
  - THROMBOSIS IN DEVICE [None]
  - ASTHENIA [None]
